FAERS Safety Report 25580605 (Version 1)
Quarter: 2025Q3

REPORT INFORMATION
  Report Type: Spontaneous
  Country: US (occurrence: US)
  Receive Date: 20250718
  Receipt Date: 20250718
  Transmission Date: 20251020
  Serious: No
  Sender: NOVO NORDISK
  Company Number: US-NOVOPROD-1418466

PATIENT
  Age: 78 Year
  Sex: Female

DRUGS (1)
  1. WEGOVY [Suspect]
     Active Substance: SEMAGLUTIDE
     Indication: Weight decreased
     Dosage: 025 MG, QW
     Route: 058
     Dates: start: 20250214

REACTIONS (4)
  - Needle track marks [Unknown]
  - Injection site discharge [Unknown]
  - Incorrect dose administered by product [Unknown]
  - Device malfunction [Unknown]

NARRATIVE: CASE EVENT DATE: 20250221
